FAERS Safety Report 13333193 (Version 3)
Quarter: 2017Q4

REPORT INFORMATION
  Report Type: Spontaneous
  Country: GB (occurrence: GB)
  Receive Date: 20170313
  Receipt Date: 20171025
  Transmission Date: 20180320
  Serious: Yes (Other)
  Sender: FDA-Public Use
  Company Number: GB-MYLANLABS-2016M1035600

PATIENT
  Age: 52 Year
  Sex: Male

DRUGS (1)
  1. CLOZARIL [Suspect]
     Active Substance: CLOZAPINE
     Indication: PRODUCT USED FOR UNKNOWN INDICATION
     Dosage: UNK
     Route: 048
     Dates: start: 20090202

REACTIONS (3)
  - Leukocytosis [Recovering/Resolving]
  - Differential white blood cell count abnormal [Recovering/Resolving]
  - Neutrophilia [Recovering/Resolving]

NARRATIVE: CASE EVENT DATE: 20140729
